FAERS Safety Report 25772579 (Version 1)
Quarter: 2025Q3

REPORT INFORMATION
  Report Type: Spontaneous
  Country: US (occurrence: US)
  Receive Date: 20250908
  Receipt Date: 20250908
  Transmission Date: 20251020
  Serious: Yes (Death, Other)
  Sender: GLAXOSMITHKLINE
  Company Number: US-GSK-US2025AMR114038

PATIENT
  Age: 54 Year
  Sex: Female

DRUGS (12)
  1. ZEJULA [Suspect]
     Active Substance: NIRAPARIB
     Indication: Fallopian tube cancer
  2. ZEJULA [Suspect]
     Active Substance: NIRAPARIB
     Indication: Colon cancer
  3. ZEJULA [Suspect]
     Active Substance: NIRAPARIB
     Indication: Metastases to reproductive organ
  4. ZEJULA [Suspect]
     Active Substance: NIRAPARIB
     Indication: Gastrointestinal neoplasm
  5. ZEJULA [Suspect]
     Active Substance: NIRAPARIB
     Indication: Metastases to ovary
  6. ZEJULA [Suspect]
     Active Substance: NIRAPARIB
     Indication: Intestinal metastasis
  7. ZEJULA [Suspect]
     Active Substance: NIRAPARIB
     Indication: Rectal neoplasm
  8. ZEJULA [Suspect]
     Active Substance: NIRAPARIB
     Indication: Ovarian neoplasm
  9. ZEJULA [Suspect]
     Active Substance: NIRAPARIB
     Indication: Gastrointestinal neoplasm
  10. ZEJULA [Suspect]
     Active Substance: NIRAPARIB
     Indication: Gastrointestinal neoplasm
  11. ZEJULA [Suspect]
     Active Substance: NIRAPARIB
     Indication: Retroperitoneal neoplasm
  12. ZEJULA [Suspect]
     Active Substance: NIRAPARIB
     Indication: Peritoneal neoplasm

REACTIONS (3)
  - Death [Fatal]
  - Product use in unapproved indication [Unknown]
  - Inappropriate schedule of product administration [Unknown]

NARRATIVE: CASE EVENT DATE: 20250601
